FAERS Safety Report 9046505 (Version 2)
Quarter: 2013Q2

REPORT INFORMATION
  Report Type: Spontaneous
  Country: US (occurrence: US)
  Receive Date: 20130204
  Receipt Date: 20130424
  Transmission Date: 20140414
  Serious: No
  Sender: FDA-Public Use
  Company Number: US-009507513-1301USA014174

PATIENT
  Sex: Female
  Weight: 65.31 kg

DRUGS (4)
  1. VICTRELIS [Suspect]
     Indication: HEPATITIS C
     Dosage: 800 MG, TID
     Route: 048
     Dates: start: 20121219
  2. RIBASPHERE [Suspect]
  3. PEGASYS [Suspect]
  4. TRAZODONE HYDROCHLORIDE [Concomitant]

REACTIONS (5)
  - Nausea [Unknown]
  - Abdominal discomfort [Unknown]
  - Pruritus [Unknown]
  - Contusion [Unknown]
  - Product quality issue [Unknown]
